FAERS Safety Report 7548268-7 (Version None)
Quarter: 2011Q2

REPORT INFORMATION
  Report Type: 
  Country: None (occurrence: None)
  Receive Date: 20110615
  Receipt Date: 20110610
  Transmission Date: 20111010
  Serious: No
  Sender: FDA-Public Use
  Company Number: US-PFIZER INC-2011127694

PATIENT
  Sex: Female

DRUGS (1)
  1. ZOLOFT [Suspect]
     Dosage: UNK
     Route: 048

REACTIONS (4)
  - FEELING ABNORMAL [None]
  - SPEECH DISORDER [None]
  - DRUG INEFFECTIVE [None]
  - ABNORMAL BEHAVIOUR [None]
